FAERS Safety Report 4309049-0 (Version None)
Quarter: 2004Q1

REPORT INFORMATION
  Report Type: 
  Country: None (occurrence: None)
  Receive Date: 20040227
  Receipt Date: 20040223
  Transmission Date: 20041129
  Serious: Yes (Hospitalization)
  Sender: FDA-Public Use
  Company Number: 2004200412FR

PATIENT
  Age: 60 Year
  Sex: Female

DRUGS (3)
  1. XANAX [Suspect]
     Indication: PREMEDICATION
     Dosage: ORAL
     Route: 048
     Dates: start: 20030831, end: 20030831
  2. HYDROXYZINE [Suspect]
     Indication: PREMEDICATION
     Dosage: ORAL
     Route: 048
     Dates: start: 20030831, end: 20030831
  3. RANITIDINE [Suspect]
     Indication: PREMEDICATION
     Dosage: ORAL
     Route: 048
     Dates: start: 20030831, end: 20030831

REACTIONS (3)
  - GENERALISED OEDEMA [None]
  - MALAISE [None]
  - OEDEMA [None]
